FAERS Safety Report 4263660-4 (Version None)
Quarter: 2004Q1

REPORT INFORMATION
  Report Type: 
  Country: None (occurrence: None)
  Receive Date: 20040102
  Receipt Date: 20031218
  Transmission Date: 20041129
  Serious: Yes (Hospitalization)
  Sender: FDA-Public Use
  Company Number: TPA2003A01761

PATIENT
  Age: 76 Year
  Sex: Male
  Weight: 76 kg

DRUGS (14)
  1. ACTOS [Suspect]
     Dosage: 45 MG, ONCE, PER ORAL
     Route: 048
     Dates: start: 20031208, end: 20031208
  2. NORVASC (AMLODIPINE BESILATE) (5 MILLIGRAM) [Suspect]
     Dosage: 5 MG, ONCE,
     Dates: start: 20031208, end: 20031208
  3. COREG (CARVEDILOL) (6.25 MILLIGRAM) [Suspect]
     Dosage: 80 MG, ONCE
     Dates: start: 20031208, end: 20031208
  4. DIOVAN (VALSARTAN) (80 MILLIGRAM) [Suspect]
     Dosage: 8 0 MG, ONCE
     Dates: start: 20031208, end: 20031208
  5. AMARYL (GLIMEPIRIDE) (4.5 MILLIGRAM) [Suspect]
     Dosage: 4.5 MG, ONCE
     Dates: start: 20031208, end: 20031208
  6. GEMCITABINE (GEMCITABINE) [Concomitant]
  7. ACETYLSALICYLIC ACID SRT [Concomitant]
  8. SENAKOT (SENNA FRUIT) [Concomitant]
  9. METAMUCIL (PSYLLIUM) [Concomitant]
  10. CELEBREX [Concomitant]
  11. DARVON [Concomitant]
  12. VITAMIN SUPPLEMENTS (VITAMINS) [Concomitant]
  13. B-12 (CYANOCOBALAMIN) [Concomitant]
  14. BETACAROTENE (BETACAROTENE) [Concomitant]

REACTIONS (2)
  - MEDICATION ERROR [None]
  - SELF-INDUCED VOMITING [None]
